FAERS Safety Report 6292724-9 (Version None)
Quarter: 2009Q3

REPORT INFORMATION
  Report Type: 
  Country: None (occurrence: None)
  Receive Date: 20090731
  Receipt Date: 20090729
  Transmission Date: 20100115
  Serious: Yes (Hospitalization, Other)
  Sender: FDA-Public Use
  Company Number: A0799405A

PATIENT
  Age: 16 Year
  Sex: Female
  Weight: 51.4 kg

DRUGS (1)
  1. AVAMYS [Suspect]
     Indication: DRUG USE FOR UNKNOWN INDICATION
     Route: 045

REACTIONS (6)
  - FEELING HOT [None]
  - REACTION TO PRESERVATIVES [None]
  - RHINALGIA [None]
  - SWELLING [None]
  - THROAT TIGHTNESS [None]
  - URTICARIA [None]
